FAERS Safety Report 16015274 (Version 2)
Quarter: 2021Q2

REPORT INFORMATION
  Report Type: Spontaneous
  Country: US (occurrence: US)
  Receive Date: 20190228
  Receipt Date: 20210518
  Transmission Date: 20210716
  Serious: Yes (Disabling)
  Sender: FDA-Public Use
  Company Number: US-TEVA-2019-US-1006697

PATIENT
  Age: 39 Year
  Sex: Female
  Weight: 74.91 kg

DRUGS (5)
  1. DOCETAXEL SANOFI AVENTIS [Suspect]
     Active Substance: DOCETAXEL
     Indication: BREAST CANCER FEMALE
     Dosage: DOSAGE: 138MG, NUMBER OF CYCLE ? 6, FREQUENCY ? EVERY THREE WEEKS
     Route: 042
     Dates: start: 20150331, end: 20150730
  2. HERCEPTIN [Suspect]
     Active Substance: TRASTUZUMAB
     Indication: BREAST CANCER FEMALE
     Dosage: LOADING DOSE : 600MG, MAINTENANCE DOSE: 455 MG
     Route: 042
     Dates: start: 20150331, end: 2017
  3. DOCETAXEL SAGENT [Suspect]
     Active Substance: DOCETAXEL
     Indication: BREAST CANCER FEMALE
     Dosage: DOSAGE: 138MG, NUMBER OF CYCLE ? 6, FREQUENCY ? EVERY THREE WEEKS
     Route: 042
     Dates: start: 20150331, end: 20150730
  4. PERTUZUMAB. [Suspect]
     Active Substance: PERTUZUMAB
     Indication: BREAST CANCER FEMALE
     Dosage: LOADING DOSE: 840MG, MAINTENANCE DOSE: 420MG
     Route: 042
     Dates: start: 20150331, end: 20150730
  5. CARBOPLATIN. [Suspect]
     Active Substance: CARBOPLATIN
     Indication: BREAST CANCER FEMALE
     Dosage: 900MG
     Route: 042
     Dates: start: 20150331, end: 20150730

REACTIONS (15)
  - Hair colour changes [Not Recovered/Not Resolved]
  - Fatigue [Unknown]
  - Visual impairment [Unknown]
  - Hair texture abnormal [Not Recovered/Not Resolved]
  - Insomnia [Unknown]
  - Dysgeusia [Unknown]
  - Alopecia areata [Not Recovered/Not Resolved]
  - Nail disorder [Unknown]
  - Candida infection [Unknown]
  - Vulvovaginal dryness [Unknown]
  - Madarosis [Not Recovered/Not Resolved]
  - Stomatitis [Unknown]
  - Vomiting [Unknown]
  - Varicose vein [Unknown]
  - Mobility decreased [Unknown]

NARRATIVE: CASE EVENT DATE: 2015
